FAERS Safety Report 9472862 (Version 1)
Quarter: 2013Q3

REPORT INFORMATION
  Report Type: Spontaneous
  Country: US (occurrence: US)
  Receive Date: 20130823
  Receipt Date: 20130823
  Transmission Date: 20140515
  Serious: No
  Sender: FDA-Public Use
  Company Number: US-PFIZER INC-2013240501

PATIENT
  Age: 88 Year
  Sex: Female
  Weight: 40.36 kg

DRUGS (1)
  1. ATROPINE SULFATE/DIPHENOXYLATE HYDROCHLORIDE [Suspect]
     Indication: DIARRHOEA
     Dosage: 50 MG, 4X/DAY
     Dates: start: 2013

REACTIONS (1)
  - Drug ineffective [Unknown]
